FAERS Safety Report 15409558 (Version 1)
Quarter: 2018Q3

REPORT INFORMATION
  Report Type: Spontaneous
  Country: US (occurrence: US)
  Receive Date: 20180920
  Receipt Date: 20180920
  Transmission Date: 20181010
  Serious: Yes (Death, Hospitalization)
  Sender: FDA-Public Use
  Company Number: US-ACTELION-A-NJ2018-178794

PATIENT
  Age: 74 Year
  Sex: Female
  Weight: 70.3 kg

DRUGS (2)
  1. OPSUMIT [Suspect]
     Active Substance: MACITENTAN
     Indication: PULMONARY ARTERIAL HYPERTENSION
     Dosage: 10 MG, BID
     Route: 048
  2. REVATIO [Concomitant]
     Active Substance: SILDENAFIL CITRATE

REACTIONS (4)
  - Renal failure [Fatal]
  - Abdominal pain upper [Unknown]
  - Gastrointestinal perforation [Fatal]
  - Hypotension [Fatal]

NARRATIVE: CASE EVENT DATE: 20180824
